FAERS Safety Report 10329017 (Version 1)
Quarter: 2014Q3

REPORT INFORMATION
  Report Type: Spontaneous
  Country: DE (occurrence: None)
  Receive Date: 20140717
  Receipt Date: 20140717
  Transmission Date: 20150326
  Serious: Yes (Hospitalization, Other)
  Sender: FDA-Public Use
  Company Number: AUR-APL-2014-07497

PATIENT
  Age: 75 Year
  Sex: Male
  Weight: 58 kg

DRUGS (4)
  1. ETORICOXIB (ETORICOXIB) [Suspect]
     Active Substance: ETORICOXIB
     Indication: METASTATIC MALIGNANT MELANOMA
     Route: 048
     Dates: start: 20130704, end: 20131115
  2. PIOGLITAZONE [Suspect]
     Active Substance: PIOGLITAZONE
     Indication: METASTATIC MALIGNANT MELANOMA
     Route: 048
     Dates: start: 20130704, end: 20140113
  3. TROFOSFAMIDE [Suspect]
     Active Substance: TROFOSFAMIDE
     Indication: METASTATIC MALIGNANT MELANOMA
     Dates: start: 20130704, end: 20140630
  4. TEMSIROLIMUS [Suspect]
     Active Substance: TEMSIROLIMUS
     Indication: METASTATIC MALIGNANT MELANOMA
     Route: 042
     Dates: start: 20130704, end: 20140626

REACTIONS (3)
  - Pleural effusion [None]
  - Pneumonia [None]
  - Dyspnoea [None]

NARRATIVE: CASE EVENT DATE: 20140630
